FAERS Safety Report 9645108 (Version 1)
Quarter: 2013Q4

REPORT INFORMATION
  Report Type: Spontaneous
  Country: US (occurrence: None)
  Receive Date: 20131023
  Receipt Date: 20131023
  Transmission Date: 20140711
  Serious: Yes (Other)
  Sender: FDA-Public Use
  Company Number: None

PATIENT
  Age: 45 Year
  Sex: Female
  Weight: 90.72 kg

DRUGS (2)
  1. BALZIVA 1/35 [Suspect]
     Indication: MENSTRUATION IRREGULAR
     Dates: start: 20110906, end: 20111030
  2. FEMCOM 1/35 [Suspect]
     Dates: start: 20111031, end: 20120430

REACTIONS (2)
  - Uterine haemorrhage [None]
  - Drug ineffective [None]
